FAERS Safety Report 7929021-9 (Version None)
Quarter: 2011Q4

REPORT INFORMATION
  Report Type: 
  Country: None (occurrence: None)
  Receive Date: 20111118
  Receipt Date: 20111103
  Transmission Date: 20120403
  Serious: Yes (Hospitalization)
  Sender: FDA-Public Use
  Company Number: FR-ROCHE-759027

PATIENT
  Sex: Male
  Weight: 76 kg

DRUGS (17)
  1. AMLODIPINE BESYLATE [Concomitant]
  2. VALGANCICLOVIR [Concomitant]
     Dates: start: 20101225, end: 20110506
  3. PREDNISONE TAB [Suspect]
     Indication: RENAL TRANSPLANT
     Dosage: REPORTED AS CORTANCYL
     Route: 048
  4. BACTRIM [Concomitant]
     Dates: start: 20101219, end: 20110506
  5. OROCAL [Concomitant]
  6. MYCOPHENOLATE MOFETIL (CELLCEPT) [Suspect]
     Dosage: DOSE REDUCED IN REPONSE TO THE SAE: NON COMPRESSIVE LYMPHOCELE (RECURRENCE) AND CREATININ STAGNATION
     Route: 048
  7. CYCLOSPORINE [Suspect]
     Indication: RENAL TRANSPLANT
     Dosage: FREQUENCY: DAILY
     Route: 048
  8. MYCOPHENOLATE MOFETIL (CELLCEPT) [Suspect]
     Indication: RENAL TRANSPLANT
     Route: 048
  9. AMLODIPINE BESYLATE [Concomitant]
     Dates: start: 20110114, end: 20110120
  10. ATORVASTATIN CALCIUM [Concomitant]
  11. CYCLOSPORINE [Suspect]
     Dosage: MORNING AND EVENING
     Route: 048
  12. PREDNISONE TAB [Suspect]
     Dosage: DOSE REDUCED IN RESPONSE TO NON COMPRESSIVE LYMPHOCELE (RECURRENCE) AND CREATININ STAGNATION AT 200U
     Route: 048
  13. AMLODIPINE BESYLATE [Concomitant]
     Dosage: IN THE MORNING
  14. MYCOPHENOLATE MOFETIL (CELLCEPT) [Suspect]
     Route: 048
  15. CYCLOSPORINE [Suspect]
     Dosage: DOSE REDUCED IN RESPONSE TO OBSTRUCTIVE RENAL INSUFFICIENCY
     Route: 048
  16. MYCOPHENOLATE MOFETIL (CELLCEPT) [Suspect]
     Dosage: MORNING AND EVENING
     Route: 048
  17. OROCAL [Concomitant]

REACTIONS (5)
  - LYMPHOCELE [None]
  - PYELONEPHRITIS ACUTE [None]
  - SEPSIS [None]
  - RENAL FAILURE [None]
  - BLOOD CREATININE INCREASED [None]
